FAERS Safety Report 5119092-X (Version None)
Quarter: 2006Q3

REPORT INFORMATION
  Report Type: 
  Country: None (occurrence: None)
  Receive Date: 20060927
  Receipt Date: 20060911
  Transmission Date: 20061208
  Serious: Yes (Hospitalization)
  Sender: FDA-Public Use
  Company Number: DSA_28691_2006

PATIENT
  Age: 73 Year
  Sex: Female

DRUGS (7)
  1. CARDIZEM CD [Suspect]
     Indication: HYPERTENSION
     Dosage: 180 MG Q DAY
  2. PRAVACHOL [Suspect]
     Dosage: DF
     Dates: start: 20020101
  3. OTHER ^STATIN^ DRUGS [Concomitant]
  4. COZAAR [Concomitant]
  5. THYROID TAB [Concomitant]
  6. PLAVIX [Concomitant]
  7. DILTIAZEM [Concomitant]

REACTIONS (9)
  - BLOOD PRESSURE INADEQUATELY CONTROLLED [None]
  - CORONARY ARTERY STENOSIS [None]
  - FATIGUE [None]
  - FLUSHING [None]
  - MYALGIA [None]
  - NAUSEA [None]
  - OVERDOSE [None]
  - THERAPEUTIC RESPONSE UNEXPECTED WITH DRUG SUBSTITUTION [None]
  - TREMOR [None]
